FAERS Safety Report 8037971-0 (Version None)
Quarter: 2012Q1

REPORT INFORMATION
  Report Type: 
  Country: None (occurrence: None)
  Receive Date: 20120111
  Receipt Date: 20120102
  Transmission Date: 20120608
  Serious: Yes (Hospitalization)
  Sender: FDA-Public Use
  Company Number: KR-ASTRAZENECA-2012SE00160

PATIENT
  Sex: Male

DRUGS (4)
  1. ATENOLOL [Concomitant]
     Indication: ANGINA PECTORIS
     Route: 048
     Dates: start: 20040602
  2. CILOSTAZOL [Concomitant]
     Indication: ANGINA PECTORIS
     Route: 048
     Dates: start: 20041026
  3. ASPIRIN [Concomitant]
     Indication: ANGINA PECTORIS
     Route: 048
     Dates: start: 20040602
  4. CRESTOR [Suspect]
     Route: 048
     Dates: start: 20050621

REACTIONS (2)
  - PANCREATITIS CHRONIC [None]
  - PANCREATOLITHIASIS [None]
